FAERS Safety Report 23534642 (Version 1)
Quarter: 2024Q1

REPORT INFORMATION
  Report Type: Report from Study
  Country: US (occurrence: US)
  Receive Date: 20240217
  Receipt Date: 20240217
  Transmission Date: 20240409
  Serious: Yes (Other)
  Sender: FDA-Public Use
  Company Number: US-ABBVIE-5602321

PATIENT
  Age: 66 Year
  Sex: Female
  Weight: 61 kg

DRUGS (16)
  1. HUMIRA [Suspect]
     Active Substance: ADALIMUMAB
     Indication: Psoriatic arthropathy
     Dosage: FORM STRENGTH 40 MILLIGRAM?START DATE TEXT: LATE 2016 OR EARLY 2017
     Route: 058
     Dates: end: 2020
  2. HUMIRA [Suspect]
     Active Substance: ADALIMUMAB
     Dosage: FORM STRENGTH 40 MILLIGRAM
     Route: 058
  3. HUMIRA [Suspect]
     Active Substance: ADALIMUMAB
     Dosage: FORM STRENGTH 40 MILLIGRAM
     Route: 058
     Dates: end: 202303
  4. HUMIRA [Suspect]
     Active Substance: ADALIMUMAB
     Dosage: FORM STRENGTH 40 MILLIGRAM
     Route: 058
     Dates: end: 202401
  5. PANTOPRAZOLE [Concomitant]
     Active Substance: PANTOPRAZOLE
     Indication: Product used for unknown indication
     Dosage: 40 MG ONE A DAY?PANTOPRAZOLE DR
  6. NOVOLOG [Concomitant]
     Active Substance: INSULIN ASPART
     Indication: Product used for unknown indication
  7. CYCLOBENZAPRINE [Concomitant]
     Active Substance: CYCLOBENZAPRINE
     Indication: Product used for unknown indication
     Dosage: 5 MG 1 TAB AT BEDTIME AS NEEDED
  8. ROSUVASTATIN [Concomitant]
     Active Substance: ROSUVASTATIN
     Indication: Product used for unknown indication
     Dosage: 40 MG ONE A DAY
  9. CALCIUM [Concomitant]
     Active Substance: CALCIUM
     Indication: Product used for unknown indication
  10. METFORMIN [Concomitant]
     Active Substance: METFORMIN HYDROCHLORIDE
     Indication: Product used for unknown indication
  11. ELIQUIS [Concomitant]
     Active Substance: APIXABAN
     Indication: Product used for unknown indication
     Dosage: 5 MG AM AND PM
  12. SOTALOL [Concomitant]
     Active Substance: SOTALOL
     Indication: Product used for unknown indication
     Dosage: 80 MG 1 EVERY 12 HRS
  13. COVID-19 vaccine [Concomitant]
     Indication: Product used for unknown indication
     Dosage: FIRST SHOT?ONE IN ONCE
     Route: 030
     Dates: start: 20210219, end: 20210219
  14. COVID-19 vaccine [Concomitant]
     Indication: Product used for unknown indication
     Dosage: SECOND SHOT?ONE IN ONCE
     Route: 030
     Dates: start: 20210319, end: 20210319
  15. COVID-19 vaccine [Concomitant]
     Indication: Product used for unknown indication
     Dosage: FIRST BOOSTER?ONE IN ONCE
     Route: 030
     Dates: start: 20210830, end: 20210830
  16. COVID-19 vaccine [Concomitant]
     Indication: Product used for unknown indication
     Dosage: FINAL BOOSTER?ONE IN ONCE
     Route: 030
     Dates: start: 20231004, end: 20231004

REACTIONS (7)
  - Foot operation [Recovered/Resolved]
  - COVID-19 [Recovered/Resolved]
  - COVID-19 [Recovered/Resolved]
  - Enamel anomaly [Recovered/Resolved]
  - COVID-19 [Recovered/Resolved]
  - Pain in extremity [Not Recovered/Not Resolved]
  - Dental attrition [Recovered/Resolved]

NARRATIVE: CASE EVENT DATE: 20201114
